FAERS Safety Report 7423032-8 (Version None)
Quarter: 2011Q2

REPORT INFORMATION
  Report Type: 
  Country: None (occurrence: None)
  Receive Date: 20110419
  Receipt Date: 20110411
  Transmission Date: 20111010
  Serious: Yes (Other)
  Sender: FDA-Public Use
  Company Number: US-AMGEN-USASP2011019254

PATIENT

DRUGS (2)
  1. ARANESP [Suspect]
     Indication: ANAEMIA
     Dosage: 150 A?G, UNK
  2. ARANESP [Suspect]
     Dosage: 300 A?G, UNK
     Dates: start: 20100901

REACTIONS (2)
  - DRUG INEFFECTIVE [None]
  - DEPRESSION [None]
